FAERS Safety Report 10694004 (Version 4)
Quarter: 2015Q2

REPORT INFORMATION
  Report Type: Spontaneous
  Country: GB (occurrence: GB)
  Receive Date: 20150106
  Receipt Date: 20150604
  Transmission Date: 20150821
  Serious: Yes (Life-Threatening, Hospitalization, Disabling, Other)
  Sender: FDA-Public Use
  Company Number: GB-ABBVIE-15P-167-1329354-00

PATIENT
  Age: 49 Year
  Sex: Female
  Weight: 65.77 kg

DRUGS (2)
  1. PROSTAP (LEUPRORELIN ACETATE) [Suspect]
     Active Substance: LEUPROLIDE ACETATE
     Indication: UTERINE LEIOMYOMA
     Route: 058
     Dates: start: 20141028
  2. PROSTAP (LEUPRORELIN ACETATE) [Suspect]
     Active Substance: LEUPROLIDE ACETATE
     Indication: SURGERY

REACTIONS (5)
  - Decreased appetite [Recovering/Resolving]
  - Pulmonary embolism [Recovering/Resolving]
  - Dyspnoea [Recovering/Resolving]
  - Dizziness [Recovering/Resolving]
  - Angina pectoris [Recovering/Resolving]

NARRATIVE: CASE EVENT DATE: 20141121
